FAERS Safety Report 4315768-2 (Version None)
Quarter: 2004Q1

REPORT INFORMATION
  Report Type: 
  Country: None (occurrence: None)
  Receive Date: 20040310
  Receipt Date: 20040223
  Transmission Date: 20041129
  Serious: Yes (Death)
  Sender: FDA-Public Use
  Company Number: 2003AP02425

PATIENT
  Age: 71 Year
  Sex: Female

DRUGS (8)
  1. IRESSA [Suspect]
     Indication: NON-SMALL CELL LUNG CANCER RECURRENT
     Dosage: 250 MG DAILY PO
     Route: 048
     Dates: start: 20030626, end: 20030629
  2. KADIAN ^KNOLL^ [Concomitant]
  3. NO MATCH [Concomitant]
  4. MAGNESIUM OXIDE [Concomitant]
  5. CARBOPLATIN [Concomitant]
  6. PACLITAXEL [Concomitant]
  7. DOCETAXEL [Concomitant]
  8. RADIOTHERAPY [Concomitant]

REACTIONS (7)
  - FALL [None]
  - FATIGUE [None]
  - GENERAL PHYSICAL HEALTH DETERIORATION [None]
  - INTERSTITIAL LUNG DISEASE [None]
  - JOINT DISLOCATION [None]
  - PULMONARY FIBROSIS [None]
  - UPPER LIMB FRACTURE [None]
